FAERS Safety Report 15948194 (Version 2)
Quarter: 2021Q4

REPORT INFORMATION
  Report Type: Spontaneous
  Country: US (occurrence: US)
  Receive Date: 20190212
  Receipt Date: 20211124
  Transmission Date: 20220303
  Serious: Yes (Disabling, Other)
  Sender: FDA-Public Use
  Company Number: US-TEVA-2019-US-1010405

PATIENT
  Age: 58 Year
  Sex: Female

DRUGS (26)
  1. DOCETAXEL [Suspect]
     Active Substance: DOCETAXEL
     Indication: Triple negative breast cancer
     Dosage: 75 MG/M2, EVERY THREE WEEKS, 6 CYCLES
     Route: 042
     Dates: start: 20141001, end: 20150116
  2. CARBOPLATIN [Suspect]
     Active Substance: CARBOPLATIN
     Indication: Triple negative breast cancer
     Dosage: AUC 6, EVERY THREE WEEKS, 6 CYCLES
     Route: 042
     Dates: start: 20141001, end: 20150116
  3. DOCETAXEL [Suspect]
     Active Substance: DOCETAXEL
     Indication: Triple negative breast cancer
     Dosage: 75 MG/M2, EVERY THREE WEEKS, 6 CYCLES
     Route: 042
     Dates: start: 20141001, end: 20150116
  4. CARBOPLATIN [Suspect]
     Active Substance: CARBOPLATIN
     Indication: Triple negative breast cancer
     Dosage: AUC 6, EVERY THREE WEEKS, 6 CYCLES
     Route: 042
     Dates: start: 20141001, end: 20150116
  5. SYNTHROID [Concomitant]
     Active Substance: LEVOTHYROXINE SODIUM
     Route: 048
  6. METFORMIN [Concomitant]
     Active Substance: METFORMIN HYDROCHLORIDE
     Route: 048
     Dates: start: 2005
  7. LIPITOR [Concomitant]
     Active Substance: ATORVASTATIN CALCIUM
     Dates: start: 2006, end: 2016
  8. METOPROLOL [Concomitant]
     Active Substance: METOPROLOL
  9. LEXAPRO [Concomitant]
     Active Substance: ESCITALOPRAM OXALATE
     Route: 048
     Dates: start: 2005
  10. CALCIUM CITRATE [Concomitant]
     Active Substance: CALCIUM CITRATE
  11. ACETAMINOPHEN [Concomitant]
     Active Substance: ACETAMINOPHEN
     Dosage: EXTRA STRENGTH
  12. IBUPROFEN [Concomitant]
     Active Substance: IBUPROFEN
  13. DEXAMETHASONE [Concomitant]
     Active Substance: DEXAMETHASONE
     Indication: Premedication
     Dosage: THE DAY BEFORE THE DAY OF AND THE DAY AFTER CHEMO TREATMENT
     Route: 048
  14. CIMETIDINE [Concomitant]
     Active Substance: CIMETIDINE
     Indication: Premedication
     Dosage: PRIOR TO TREATMENT (FOR TAXOTERE)
     Route: 048
  15. DIPHENHYDRAMINE [Concomitant]
     Active Substance: DIPHENHYDRAMINE
     Indication: Premedication
     Dosage: 25MG IN 50ML, NS, OVER 16-20 MINUTES
     Route: 042
  16. ONDANSETRON [Concomitant]
     Active Substance: ONDANSETRON
     Indication: Premedication
     Dosage: 12MG IN 50ML, NS, OVER 16-20 MINUTES
     Route: 042
  17. EMEND [Concomitant]
     Active Substance: APREPITANT
     Indication: Premedication
     Dosage: 150MG IN 150ML, NS, OVER 20-30 MINUTES
     Route: 042
  18. NEULASTA [Concomitant]
     Active Substance: PEGFILGRASTIM
     Dosage: DAY 2, 24-48 HRS AFTER CHEMO
     Route: 058
  19. ATENOLOL [Concomitant]
     Active Substance: ATENOLOL
     Route: 048
  20. ATORVASTATIN [Concomitant]
     Active Substance: ATORVASTATIN
     Route: 048
  21. BIOTIN [Concomitant]
     Active Substance: BIOTIN
     Route: 048
  22. CHOLECALCIFEROL [Concomitant]
     Active Substance: CHOLECALCIFEROL
     Route: 048
  23. FISH OIL [Concomitant]
     Active Substance: FISH OIL
     Route: 048
  24. SODIUM CHLORIDE [Concomitant]
     Active Substance: SODIUM CHLORIDE
     Indication: Nasal congestion
     Dosage: 1 SPRAY EACH NOSTRIL
     Route: 045
  25. TRIAMCINOLONE [Concomitant]
     Active Substance: TRIAMCINOLONE
     Dosage: 1 SPRAY EACH NOSTRIL EVERY DAY
     Route: 045
  26. TRIAMCINOLONE [Concomitant]
     Active Substance: TRIAMCINOLONE
     Dosage: 1 APPLICATION APPLY TO SKIN TWO TIMES A DAY AS NEEDED
     Route: 061

REACTIONS (22)
  - Alopecia areata [Not Recovered/Not Resolved]
  - Madarosis [Not Recovered/Not Resolved]
  - Neuropathy peripheral [Unknown]
  - Hair texture abnormal [Not Recovered/Not Resolved]
  - Hair colour changes [Not Recovered/Not Resolved]
  - Oral candidiasis [Recovered/Resolved]
  - Vulvovaginal mycotic infection [Recovered/Resolved]
  - Nausea [Unknown]
  - Constipation [Recovered/Resolved]
  - Fatigue [Unknown]
  - Dysgeusia [Unknown]
  - Decreased appetite [Unknown]
  - Pain [Unknown]
  - Nail discolouration [Unknown]
  - Taste disorder [Unknown]
  - Stomatitis [Unknown]
  - Myalgia [Unknown]
  - Arthralgia [Unknown]
  - Dehydration [Unknown]
  - Dysphagia [Unknown]
  - Nail disorder [Unknown]
  - Impaired work ability [Unknown]

NARRATIVE: CASE EVENT DATE: 20140101
